FAERS Safety Report 11388752 (Version 2)
Quarter: 2015Q3

REPORT INFORMATION
  Report Type: Report from Study
  Country: BE (occurrence: BE)
  Receive Date: 20150817
  Receipt Date: 20150910
  Transmission Date: 20151125
  Serious: Yes (Hospitalization)
  Sender: FDA-Public Use
  Company Number: BE-ABBVIE-15P-013-1426543-00

PATIENT
  Sex: Male

DRUGS (3)
  1. DUODOPA [Suspect]
     Active Substance: CARBIDOPA\LEVODOPA
     Indication: PARKINSON^S DISEASE
     Dosage: AM=5.5ML;CD=2.2ML/HR DURING 16HRS; ED=1.5ML
     Route: 050
     Dates: start: 20141215, end: 20150106
  2. DUODOPA [Suspect]
     Active Substance: CARBIDOPA\LEVODOPA
     Dosage: DOSES CONTINUOUSLY MONITORED AND ADAPTED
     Route: 050
     Dates: start: 20150106, end: 20150305
  3. DUODOPA [Suspect]
     Active Substance: CARBIDOPA\LEVODOPA
     Dosage: AM=5ML; CD=2.9ML/HR DURING 16HRS; ED=2.8ML
     Route: 050
     Dates: start: 20150305

REACTIONS (2)
  - Pain [Recovered/Resolved]
  - Intervertebral disc protrusion [Not Recovered/Not Resolved]
